FAERS Safety Report 6164705-7 (Version None)
Quarter: 2009Q2

REPORT INFORMATION
  Report Type: 
  Country: None (occurrence: None)
  Receive Date: 20090423
  Receipt Date: 20090415
  Transmission Date: 20091009
  Serious: Yes (Death)
  Sender: FDA-Public Use
  Company Number: US-ROCHE-626041

PATIENT
  Age: 56 Year
  Sex: Female
  Weight: 45.6 kg

DRUGS (6)
  1. PEGASYS [Suspect]
     Indication: HEPATITIS C
     Route: 058
     Dates: start: 20080611
  2. COPEGUS [Suspect]
     Indication: HEPATITIS C
     Route: 048
     Dates: start: 20080611
  3. SPIRIVA [Concomitant]
     Dosage: FREQUENCY: EVERY DAY
     Route: 055
     Dates: start: 20060524
  4. REMERON [Concomitant]
     Indication: DEPRESSION
     Dosage: FREQUENCY: EVERY DAY
     Route: 048
     Dates: start: 20060524
  5. ATENOLOL [Concomitant]
     Indication: HYPERTENSION
     Dosage: FREQUENCY: EVERY DAY
     Route: 048
     Dates: start: 20060524
  6. XANAX [Concomitant]
     Indication: ANXIETY
     Route: 048
     Dates: start: 20061004

REACTIONS (1)
  - DEATH [None]
